FAERS Safety Report 16490293 (Version 2)
Quarter: 2021Q4

REPORT INFORMATION
  Report Type: Spontaneous
  Country: ES (occurrence: ES)
  Receive Date: 20190628
  Receipt Date: 20211012
  Transmission Date: 20220303
  Serious: Yes (Life-Threatening, Hospitalization, Other)
  Sender: FDA-Public Use
  Company Number: ES-AEMPS-508839

PATIENT
  Age: 76 Year
  Sex: Female

DRUGS (4)
  1. OMEPRAZOLE [Interacting]
     Active Substance: OMEPRAZOLE
     Indication: Product used for unknown indication
     Dosage: 20 MILLIGRAM, ONCE A DAY
     Route: 048
     Dates: start: 200712, end: 20190430
  2. FUROSEMIDE [Interacting]
     Active Substance: FUROSEMIDE
     Indication: Product used for unknown indication
     Dosage: 40 MILLIGRAM
     Route: 048
     Dates: start: 201611
  3. CITALOPRAM [Interacting]
     Active Substance: CITALOPRAM HYDROBROMIDE
     Indication: Product used for unknown indication
     Dosage: 20 MILLIGRAM, ONCE A DAY
     Route: 048
     Dates: start: 201504, end: 20190410
  4. CLOMIPRAMINE HYDROCHLORIDE [Interacting]
     Active Substance: CLOMIPRAMINE HYDROCHLORIDE
     Indication: Product used for unknown indication
     Dosage: 75 MILLIGRAM
     Route: 048
     Dates: start: 200601, end: 20190410

REACTIONS (4)
  - Electrocardiogram QT prolonged [Recovered/Resolved]
  - Torsade de pointes [Recovered/Resolved]
  - Hypokalaemia [Recovered/Resolved]
  - Antidepressant drug level increased [Recovering/Resolving]

NARRATIVE: CASE EVENT DATE: 20190410
